FAERS Safety Report 4286691-7 (Version None)
Quarter: 2004Q1

REPORT INFORMATION
  Report Type: 
  Country: None (occurrence: None)
  Receive Date: 20040204
  Receipt Date: 20040123
  Transmission Date: 20041129
  Serious: Yes (Hospitalization)
  Sender: FDA-Public Use
  Company Number: 103869ISR

PATIENT
  Sex: Male

DRUGS (9)
  1. METHOTREXATE [Suspect]
     Dosage: ORAL
     Route: 048
     Dates: start: 20031203
  2. MELOXICAM [Concomitant]
  3. ALENDRONATE SODIUM [Concomitant]
  4. CALCIUM CARBONATE [Concomitant]
  5. SPIRIVA (TIOTROPIUM) [Concomitant]
  6. SYMBICORT (FORMOTEROL/BUDESONIDE) [Concomitant]
  7. IPRATROPIUM BROMIDE [Concomitant]
  8. PREDNISOLONE [Concomitant]
  9. FORMOTEROL [Concomitant]

REACTIONS (1)
  - PULMONARY FUNCTION TEST DECREASED [None]
